FAERS Safety Report 21784304 (Version 1)
Quarter: 2022Q4

REPORT INFORMATION
  Report Type: Spontaneous
  Country: US (occurrence: US)
  Receive Date: 20221227
  Receipt Date: 20221227
  Transmission Date: 20230113
  Serious: No
  Sender: FDA-Public Use
  Company Number: US-BAYER-2022P031268

PATIENT
  Age: 24 Year
  Sex: Female
  Weight: 62.3 kg

DRUGS (5)
  1. ADEMPAS [Suspect]
     Active Substance: RIOCIGUAT
     Indication: Product used for unknown indication
     Dosage: UNK
     Route: 048
  2. SELEXIPAG [Suspect]
     Active Substance: SELEXIPAG
     Indication: Pulmonary arterial hypertension
     Dosage: 200 MG
     Route: 048
  3. UPTRAVI [Concomitant]
     Active Substance: SELEXIPAG
  4. REVATIO [Concomitant]
     Active Substance: SILDENAFIL CITRATE
  5. OPSUMIT [Concomitant]
     Active Substance: MACITENTAN

REACTIONS (7)
  - Diarrhoea [None]
  - Dyspepsia [None]
  - Defaecation urgency [None]
  - Dizziness [None]
  - Presyncope [None]
  - Drug ineffective [None]
  - Oedema peripheral [None]
